FAERS Safety Report 10714438 (Version 1)
Quarter: 2015Q1

REPORT INFORMATION
  Report Type: Spontaneous
  Country: US (occurrence: US)
  Receive Date: 20150115
  Receipt Date: 20150115
  Transmission Date: 20150721
  Serious: No
  Sender: FDA-Public Use
  Company Number: US-ASTELLAS-2014US018290

PATIENT
  Sex: Male

DRUGS (1)
  1. MYRBETRIQ [Suspect]
     Active Substance: MIRABEGRON
     Indication: HYPERTONIC BLADDER
     Dosage: 75 MG, TOTAL DOSE (25 MG IN AM AND 50 MG IN NIGHT)
     Route: 048
     Dates: end: 20141117

REACTIONS (3)
  - Nocturia [Recovered/Resolved]
  - Intentional product use issue [Unknown]
  - Inappropriate schedule of drug administration [Unknown]
